FAERS Safety Report 8875161 (Version 1)
Quarter: 2012Q4

REPORT INFORMATION
  Report Type: 
  Country: US (occurrence: US)
  Receive Date: 20121029
  Receipt Date: 20121029
  Transmission Date: 20130627
  Serious: No
  Sender: FDA-Public Use
  Company Number: US-PFIZER INC-2012268162

PATIENT
  Age: 75 Year
  Sex: Female
  Weight: 62.6 kg

DRUGS (2)
  1. CELEBREX [Suspect]
     Indication: ARTHRITIS
     Dosage: 200 mg, Daily
     Route: 048
  2. CELEBREX [Suspect]
     Dosage: 200 mg, 2x/day
     Route: 048
     Dates: start: 2012

REACTIONS (2)
  - Urticaria [Recovering/Resolving]
  - Pruritus generalised [Recovering/Resolving]
